FAERS Safety Report 20713529 (Version 1)
Quarter: 2022Q2

REPORT INFORMATION
  Report Type: Spontaneous
  Country: US (occurrence: None)
  Receive Date: 20220414
  Receipt Date: 20220414
  Transmission Date: 20220721
  Serious: Yes (Death)
  Sender: FDA-Public Use
  Company Number: None

PATIENT
  Age: 76 Year
  Sex: Male
  Weight: 90 kg

DRUGS (2)
  1. JARDIANCE [Suspect]
     Active Substance: EMPAGLIFLOZIN
     Indication: Type 2 diabetes mellitus
     Dosage: OTHER QUANTITY : 1 TABLET(S);?FREQUENCY : DAILY;?
     Route: 048
     Dates: start: 20220127, end: 20220307
  2. JARDIANCE [Suspect]
     Active Substance: EMPAGLIFLOZIN
     Indication: Cardiac failure congestive

REACTIONS (8)
  - Acute coronary syndrome [None]
  - Diabetic ketoacidosis [None]
  - Sepsis [None]
  - Infection [None]
  - Metabolic function test abnormal [None]
  - Unresponsive to stimuli [None]
  - Ventricular tachycardia [None]
  - Ventricular fibrillation [None]

NARRATIVE: CASE EVENT DATE: 20220308
